FAERS Safety Report 9631193 (Version 3)
Quarter: 2014Q2

REPORT INFORMATION
  Report Type: Spontaneous
  Country: GB (occurrence: None)
  Receive Date: 20131015
  Receipt Date: 20140402
  Transmission Date: 20141212
  Serious: Yes (Disabling, Other)
  Sender: FDA-Public Use
  Company Number: AUR-APL-2013-08196

PATIENT
  Age: 28 Year
  Sex: Female
  Weight: 98.42 kg

DRUGS (4)
  1. SERTRALINE [Suspect]
     Indication: ANXIETY
     Route: 048
     Dates: start: 201301, end: 2013
  2. SERTRALINE [Suspect]
     Indication: DEPRESSION
     Route: 048
     Dates: start: 201301, end: 2013
  3. SERTRALINE [Suspect]
     Indication: PANIC ATTACK
     Route: 048
     Dates: start: 201301, end: 2013
  4. PROPANOL [Concomitant]

REACTIONS (10)
  - Depression [None]
  - Panic attack [None]
  - Mood altered [None]
  - Mood swings [None]
  - Feeling abnormal [None]
  - Affect lability [None]
  - Crying [None]
  - Self-injurious ideation [None]
  - Energy increased [None]
  - Euphoric mood [None]
